FAERS Safety Report 6358233-3 (Version None)
Quarter: 2009Q3

REPORT INFORMATION
  Report Type: 
  Country: None (occurrence: None)
  Receive Date: 20090911
  Receipt Date: 20090901
  Transmission Date: 20100115
  Serious: Yes (Other)
  Sender: FDA-Public Use
  Company Number: ADR18312009

PATIENT
  Age: 62 Year
  Sex: Female

DRUGS (2)
  1. METFORMIN HCL [Suspect]
  2. ERY-MAX (ERYTHROMYCIN), MICARDIS PLUS (TELMISARTAN-HCTZ) [Concomitant]

REACTIONS (2)
  - LACTIC ACIDOSIS [None]
  - RENAL FAILURE ACUTE [None]
